FAERS Safety Report 19361710 (Version 1)
Quarter: 2021Q2

REPORT INFORMATION
  Report Type: Spontaneous
  Country: US (occurrence: US)
  Receive Date: 20210603
  Receipt Date: 20210603
  Transmission Date: 20210717
  Serious: No
  Sender: FDA-Public Use
  Company Number: US-ROCHE-2784490

PATIENT
  Sex: Female

DRUGS (1)
  1. OCREVUS [Suspect]
     Active Substance: OCRELIZUMAB
     Indication: MULTIPLE SCLEROSIS
     Dosage: 300MG/10ML
     Route: 042
     Dates: start: 20200801

REACTIONS (5)
  - Influenza like illness [Unknown]
  - Vomiting [Unknown]
  - Eye swelling [Unknown]
  - Nausea [Unknown]
  - Swelling face [Unknown]
